FAERS Safety Report 17193546 (Version 2)
Quarter: 2020Q2

REPORT INFORMATION
  Report Type: Spontaneous
  Country: GB (occurrence: GB)
  Receive Date: 20191223
  Receipt Date: 20200415
  Transmission Date: 20200713
  Serious: No
  Sender: FDA-Public Use
  Company Number: US-MARKSANS PHARMA LTD 276613

PATIENT

DRUGS (1)
  1. GUAIFENESIN 100 MG/5ML ORAL SOLUTION [Suspect]
     Active Substance: GUAIFENESIN

REACTIONS (2)
  - Hordeolum [Recovered/Resolved]
  - Nightmare [None]

NARRATIVE: CASE EVENT DATE: 20200403
